FAERS Safety Report 4449117-6 (Version None)
Quarter: 2004Q3

REPORT INFORMATION
  Report Type: 
  Country: None (occurrence: None)
  Receive Date: 20040910
  Receipt Date: 20040827
  Transmission Date: 20050211
  Serious: Yes (Death, Hospitalization)
  Sender: FDA-Public Use
  Company Number: 2004227101JP

PATIENT
  Age: 61 Year
  Sex: Female
  Weight: 42.8 kg

DRUGS (10)
  1. CAMPTOSAR [Suspect]
     Indication: OVARIAN DYSGERMINOMA STAGE UNSPECIFIED
     Dosage: 65 MG, CYCLIC, IV DRIP
     Route: 041
     Dates: start: 20040701, end: 20040701
  2. CISPLATIN [Suspect]
     Indication: OVARIAN DYSGERMINOMA STAGE UNSPECIFIED
     Dosage: 65 MG, CYCLIC, IV DRIP
     Route: 041
     Dates: start: 20040701, end: 20040701
  3. TAXOL [Concomitant]
  4. PARAPLATIN [Concomitant]
  5. FESIN (SACCHARATED IRON OXIDE) [Concomitant]
  6. MORPHINE [Concomitant]
  7. SOLANAX [Concomitant]
  8. DEPAS (ETIZOLAM) [Concomitant]
  9. CINAL (CALCIUM PANTHOTENATE) [Concomitant]
  10. VITAMEDIN CAPSULE (BENFOTIAMINE) [Concomitant]

REACTIONS (11)
  - ANAEMIA [None]
  - ANOREXIA [None]
  - ANURIA [None]
  - BONE MARROW DISORDER [None]
  - DEPRESSED LEVEL OF CONSCIOUSNESS [None]
  - LEUKOPENIA [None]
  - NAUSEA [None]
  - PROTHROMBIN TIME PROLONGED [None]
  - PYREXIA [None]
  - RENAL DISORDER [None]
  - THROMBOCYTOPENIA [None]
